FAERS Safety Report 4308101-3 (Version None)
Quarter: 2004Q1

REPORT INFORMATION
  Report Type: 
  Country: None (occurrence: None)
  Receive Date: 20040301
  Receipt Date: 20030507
  Transmission Date: 20041129
  Serious: No
  Sender: FDA-Public Use
  Company Number: US-BRISTOL-MYERS SQUIBB COMPANY-12270732

PATIENT
  Sex: Female

DRUGS (1)
  1. GLUCOPHAGE [Suspect]
     Indication: DIABETES MELLITUS
     Dosage: THERAPY FROM:  ^APRIL OR MAY 2002^
     Route: 048

REACTIONS (1)
  - DIABETES MELLITUS INADEQUATE CONTROL [None]
